FAERS Safety Report 8550171-0 (Version None)
Quarter: 2012Q3

REPORT INFORMATION
  Report Type: 
  Country: None (occurrence: None)
  Receive Date: 20120730
  Receipt Date: 20120719
  Transmission Date: 20120928
  Serious: Yes (Death, Life-Threatening, Hospitalization, Other)
  Sender: FDA-Public Use
  Company Number: US-ACTELION-A-US2012-67165

PATIENT
  Age: 43 Year
  Sex: Female

DRUGS (13)
  1. LASIX [Concomitant]
  2. SPIRONOLACTONE [Concomitant]
     Dosage: UNK
  3. POTASSIUM CHLORIDE [Concomitant]
  4. ZAROXOLYN [Concomitant]
     Dosage: UNK
     Dates: start: 20120418
  5. WARFARIN SODIUM [Concomitant]
  6. EPOPROSTENOL SODIUM [Suspect]
     Indication: PULMONARY ARTERIAL HYPERTENSION
     Dosage: 18.0 NG/KG, PER MIN
     Route: 042
     Dates: start: 20110921
  7. EPOPROSTENOL SODIUM [Suspect]
     Dosage: 30 NG/KG, PER MIN
     Route: 042
  8. TRACLEER [Suspect]
     Indication: PULMONARY ARTERIAL HYPERTENSION
     Dosage: UNK
     Route: 048
     Dates: start: 20100611
  9. TORSEMIDE [Concomitant]
  10. RISPERIDONE [Concomitant]
  11. ULTRAM [Concomitant]
  12. HYDROCODONE [Concomitant]
  13. REGLAN [Concomitant]
     Dosage: UNK
     Dates: start: 20120318

REACTIONS (14)
  - ISCHAEMIC HEPATITIS [None]
  - CONDITION AGGRAVATED [None]
  - RIGHT VENTRICULAR FAILURE [None]
  - RENAL FAILURE ACUTE [None]
  - PALPITATIONS [None]
  - CARDIOGENIC SHOCK [None]
  - SUPRAVENTRICULAR TACHYCARDIA [None]
  - HYPOKALAEMIA [None]
  - NAUSEA [None]
  - DECREASED APPETITE [None]
  - LACTIC ACIDOSIS [None]
  - DYSPNOEA [None]
  - PULMONARY ARTERIAL HYPERTENSION [None]
  - WEIGHT DECREASED [None]
